FAERS Safety Report 8256639-9 (Version None)
Quarter: 2012Q2

REPORT INFORMATION
  Report Type: 
  Country: None (occurrence: None)
  Receive Date: 20120402
  Receipt Date: 20120402
  Transmission Date: 20120825
  Serious: Yes (Death, Hospitalization)
  Sender: FDA-Public Use
  Company Number: None

PATIENT
  Age: 38 Year
  Sex: Female
  Weight: 59 kg

DRUGS (2)
  1. ATRIPLA [Suspect]
     Indication: HIV INFECTION
     Dosage: 600/200/300 MG QD ORAL
     Route: 048
     Dates: start: 20120117, end: 20120126
  2. VEPESID [Suspect]
     Indication: KAPOSI'S SARCOMA
     Dosage: 50 MG QD ORAL
     Route: 048
     Dates: start: 20120118, end: 20120124

REACTIONS (9)
  - MENINGITIS [None]
  - RENAL FAILURE [None]
  - WHITE BLOOD CELLS URINE POSITIVE [None]
  - SALMONELLA SEPSIS [None]
  - GASTROENTERITIS [None]
  - DYSPNOEA [None]
  - PROTEIN URINE PRESENT [None]
  - MALARIA [None]
  - PULMONARY TUBERCULOMA [None]
